FAERS Safety Report 13226531 (Version 1)
Quarter: 2017Q1

REPORT INFORMATION
  Report Type: Report from Study
  Country: US (occurrence: US)
  Receive Date: 20170213
  Receipt Date: 20170213
  Transmission Date: 20170428
  Serious: Yes (Hospitalization)
  Sender: FDA-Public Use
  Company Number: PHHO2017US001773

PATIENT
  Sex: Female
  Weight: 74.5 kg

DRUGS (4)
  1. BLINDED PAZOPANIB [Suspect]
     Active Substance: PAZOPANIB
     Indication: THYROID CANCER
     Dosage: 300 MG, QD
     Route: 048
     Dates: start: 20150904, end: 20150909
  2. BLINDED PACLITAXEL [Suspect]
     Active Substance: PACLITAXEL
     Indication: THYROID CANCER
     Dosage: 300 MG, QD
     Route: 048
     Dates: start: 20150904, end: 20150909
  3. BLINDED NO TREATMENT RECEIVED [Suspect]
     Active Substance: INVESTIGATIONAL PRODUCT
     Indication: THYROID CANCER
     Dosage: 300 MG, QD
     Route: 048
     Dates: start: 20150904, end: 20150909
  4. COMPARATOR PACLITAXEL [Suspect]
     Active Substance: PACLITAXEL
     Indication: THYROID CANCER
     Dosage: 50 MG/M2, OVER 1 HOUR QWEEK
     Route: 042
     Dates: start: 20150904, end: 20150909

REACTIONS (4)
  - Hypotension [Recovering/Resolving]
  - Acute kidney injury [Recovering/Resolving]
  - Dehydration [Recovering/Resolving]
  - Radiation skin injury [Recovering/Resolving]

NARRATIVE: CASE EVENT DATE: 20150910
